FAERS Safety Report 8932969 (Version 4)
Quarter: 2013Q1

REPORT INFORMATION
  Report Type: Spontaneous
  Country: BR (occurrence: BR)
  Receive Date: 20121128
  Receipt Date: 20130221
  Transmission Date: 20140127
  Serious: Yes (Other)
  Sender: FDA-Public Use
  Company Number: BR-MERCK-1211BRA010783

PATIENT
  Age: 52 None
  Sex: Female
  Weight: 64 kg

DRUGS (3)
  1. PEG-INTRON [Suspect]
     Indication: HEPATITIS C
     Dosage: 80 MICROGRAM, QW
     Route: 058
     Dates: start: 20120711
  2. VICTRELIS [Suspect]
     Indication: HEPATITIS C
     Dosage: 800 MG, Q8H
     Route: 048
     Dates: start: 20120802
  3. RIBAVIRIN [Concomitant]
     Indication: HEPATITIS C
     Dosage: 500 MG, Q12H
     Route: 048
     Dates: start: 20120711

REACTIONS (33)
  - Deafness transitory [Recovered/Resolved]
  - Oral mucosal blistering [Not Recovered/Not Resolved]
  - Decreased immune responsiveness [Unknown]
  - Weight increased [Recovering/Resolving]
  - Thirst [Not Recovered/Not Resolved]
  - Hyperphagia [Recovering/Resolving]
  - Blood creatinine increased [Not Recovered/Not Resolved]
  - Dry eye [Not Recovered/Not Resolved]
  - Aphthous stomatitis [Not Recovered/Not Resolved]
  - Malaise [Unknown]
  - White blood cell count decreased [Not Recovered/Not Resolved]
  - Amnesia [Not Recovered/Not Resolved]
  - Ear infection [Recovered/Resolved]
  - Nocturia [Not Recovered/Not Resolved]
  - Pain [Recovering/Resolving]
  - Depression [Unknown]
  - Cough [Not Recovered/Not Resolved]
  - Headache [Recovering/Resolving]
  - Pyrexia [Recovering/Resolving]
  - Arthralgia [Recovering/Resolving]
  - Decreased appetite [Recovering/Resolving]
  - Fatigue [Recovering/Resolving]
  - Dysgeusia [Not Recovered/Not Resolved]
  - Insomnia [Not Recovered/Not Resolved]
  - Platelet count decreased [Not Recovered/Not Resolved]
  - Nausea [Not Recovered/Not Resolved]
  - Diarrhoea [Recovered/Resolved]
  - Dry mouth [Not Recovered/Not Resolved]
  - Dry skin [Not Recovered/Not Resolved]
  - Vomiting [Recovered/Resolved]
  - Fatigue [Recovering/Resolving]
  - Rash macular [Not Recovered/Not Resolved]
  - Drug administration error [Unknown]
